FAERS Safety Report 15891163 (Version 1)
Quarter: 2019Q1

REPORT INFORMATION
  Report Type: Spontaneous
  Country: FR (occurrence: FR)
  Receive Date: 20190130
  Receipt Date: 20190130
  Transmission Date: 20190417
  Serious: Yes (Death)
  Sender: FDA-Public Use
  Company Number: FR-MYLANLABS-2019M1008201

PATIENT
  Age: 31 Year
  Sex: Male
  Weight: 69.7 kg

DRUGS (2)
  1. LEVOMEPROMAZINE [Suspect]
     Active Substance: LEVOMEPROMAZINE
     Indication: PSYCHOTIC DISORDER
     Dosage: UNK(40 GOUTTES MATIN, 20 A MIDI, 50 NUIT ET 20 GOUTTES EN SB)
     Route: 048
     Dates: start: 201805, end: 20180513
  2. QUETIAPINE. [Suspect]
     Active Substance: QUETIAPINE
     Indication: PSYCHOTIC DISORDER
     Dosage: 450 MILLIGRAM, QD
     Route: 048
     Dates: end: 20180513

REACTIONS (2)
  - Vomiting [Fatal]
  - Sudden death [Fatal]

NARRATIVE: CASE EVENT DATE: 20180513
